FAERS Safety Report 10645769 (Version 1)
Quarter: 2014Q4

REPORT INFORMATION
  Report Type: Spontaneous
  Country: CN (occurrence: None)
  Receive Date: 20141209
  Receipt Date: 20141209
  Transmission Date: 20150529
  Serious: Yes (Hospitalization)
  Sender: FDA-Public Use
  Company Number: IPC201411-000642

PATIENT
  Age: 80 Year
  Sex: Male

DRUGS (2)
  1. PANAX NOTOGINSENG [Concomitant]
  2. ALLOPURINOL (ALLOPURINOL) [Suspect]
     Active Substance: ALLOPURINOL
     Indication: GOUT
     Route: 048

REACTIONS (2)
  - Purpura [None]
  - Hypofibrinogenaemia [None]
